FAERS Safety Report 15155805 (Version 1)
Quarter: 2018Q3

REPORT INFORMATION
  Report Type: Spontaneous
  Country: NL (occurrence: NL)
  Receive Date: 20180717
  Receipt Date: 20180717
  Transmission Date: 20181010
  Serious: Yes (Hospitalization)
  Sender: FDA-Public Use
  Company Number: NL-US WORLDMEDS, LLC-STA_00017937

PATIENT
  Age: 66 Year
  Sex: Male

DRUGS (1)
  1. APOMORPHINE HYDROCHLORIDE [Suspect]
     Active Substance: APOMORPHINE HYDROCHLORIDE
     Indication: PARKINSON^S DISEASE
     Dosage: FLOW 1,40 ML/HR (0.7 MG/HR) DURING 16 HRS, BOLUS 0.91 ML (4.55 ML) MAXIMAL 4 TIMES DAILY
     Route: 058
     Dates: start: 20120808

REACTIONS (1)
  - Haemolytic anaemia [Recovered/Resolved]

NARRATIVE: CASE EVENT DATE: 20140702
